FAERS Safety Report 4964604-X (Version None)
Quarter: 2006Q2

REPORT INFORMATION
  Report Type: 
  Country: None (occurrence: None)
  Receive Date: 20060406
  Receipt Date: 20050923
  Transmission Date: 20061013
  Serious: Yes (Hospitalization)
  Sender: FDA-Public Use
  Company Number: US-MERCK-0509USA03792

PATIENT
  Age: 57 Year
  Sex: Male
  Weight: 104 kg

DRUGS (2)
  1. VIOXX [Suspect]
     Indication: ARTHRITIS
     Route: 048
     Dates: start: 19990901
  2. VIOXX [Suspect]
     Route: 048
     Dates: start: 19990909, end: 20030501

REACTIONS (7)
  - ABDOMINAL PAIN [None]
  - ARTHROPATHY [None]
  - CHEST PAIN [None]
  - CORONARY ARTERY DISEASE [None]
  - DIVERTICULITIS [None]
  - DIZZINESS [None]
  - MYOCARDIAL INFARCTION [None]
